FAERS Safety Report 21009094 (Version 1)
Quarter: 2022Q2

REPORT INFORMATION
  Report Type: Spontaneous
  Country: US (occurrence: US)
  Receive Date: 20220627
  Receipt Date: 20220627
  Transmission Date: 20220721
  Serious: Yes (Hospitalization, Other)
  Sender: FDA-Public Use
  Company Number: US-BRISTOL-MYERS SQUIBB COMPANY-2022-057650

PATIENT
  Age: 88 Year
  Sex: Female
  Weight: 44.2 kg

DRUGS (1)
  1. POMALYST [Suspect]
     Active Substance: POMALIDOMIDE
     Indication: Plasma cell myeloma
     Dosage: DOSE : 3 MG;     FREQ : ?1 CAPSULE A DAY 21 DAYS, 7 DAY BREAK?
     Route: 065
     Dates: start: 20211019

REACTIONS (3)
  - Urinary tract infection [Unknown]
  - Dehydration [Unknown]
  - Pneumonia [Unknown]

NARRATIVE: CASE EVENT DATE: 20220507
